FAERS Safety Report 10162810 (Version 1)
Quarter: 2014Q2

REPORT INFORMATION
  Report Type: Spontaneous
  Country: NZ (occurrence: NZ)
  Receive Date: 20140509
  Receipt Date: 20140509
  Transmission Date: 20141212
  Serious: Yes (Death)
  Sender: FDA-Public Use
  Company Number: NZ-BAXTER-2014BAX022552

PATIENT
  Age: 69 Year
  Sex: Female

DRUGS (2)
  1. DIANEAL LOW CALCIUM SOLUTION WITH DEXTROSE, 2.5%, DIALYSIS SOLUTION [Suspect]
     Indication: PERITONEAL DIALYSIS
     Route: 033
  2. EXTRANEAL, 7.5%W/V, DIALYSIS SOLUTION [Suspect]
     Indication: PERITONEAL DIALYSIS
     Route: 033

REACTIONS (1)
  - Death [Fatal]
